FAERS Safety Report 13071474 (Version 2)
Quarter: 2017Q2

REPORT INFORMATION
  Report Type: Spontaneous
  Country: US (occurrence: US)
  Receive Date: 20161229
  Receipt Date: 20170404
  Transmission Date: 20170830
  Serious: No
  Sender: FDA-Public Use
  Company Number: US-PFIZER INC-2016590053

PATIENT
  Age: 72 Year
  Sex: Female
  Weight: 100 kg

DRUGS (6)
  1. XELJANZ [Suspect]
     Active Substance: TOFACITINIB CITRATE
     Indication: RHEUMATOID ARTHRITIS
     Dosage: 5 MG, 2X/DAY (TAKE ONE)
     Route: 048
     Dates: start: 20161028
  2. ENBREL [Concomitant]
     Active Substance: ETANERCEPT
     Dosage: UNK
  3. XELJANZ [Suspect]
     Active Substance: TOFACITINIB CITRATE
     Dosage: UNK
  4. METHOTREXATE. [Concomitant]
     Active Substance: METHOTREXATE
     Indication: RHEUMATOID ARTHRITIS
     Dosage: 7 MG, WEEKLY
  5. XELJANZ [Suspect]
     Active Substance: TOFACITINIB CITRATE
     Dosage: 10 MG, 2X/DAY
  6. METHOTREXATE. [Concomitant]
     Active Substance: METHOTREXATE
     Dosage: UNK (AT LEAST EVERY 2 WKS)

REACTIONS (3)
  - Condition aggravated [Not Recovered/Not Resolved]
  - Anaemia [Unknown]
  - Muscular weakness [Unknown]

NARRATIVE: CASE EVENT DATE: 201610
